FAERS Safety Report 8830749 (Version 3)
Quarter: 2014Q2

REPORT INFORMATION
  Report Type: Spontaneous
  Country: US (occurrence: US)
  Receive Date: 20121009
  Receipt Date: 20131018
  Transmission Date: 20141212
  Serious: Yes (Other)
  Sender: FDA-Public Use
  Company Number: US-PFIZER INC-2012245405

PATIENT
  Sex: Male

DRUGS (1)
  1. SOLU-MEDROL [Suspect]
     Dosage: 80 MG, 2X/DAY
     Dates: start: 20121002

REACTIONS (3)
  - Product quality issue [Recovering/Resolving]
  - Convulsion [Recovering/Resolving]
  - Dyspnoea [Recovering/Resolving]
